FAERS Safety Report 4860664-5 (Version None)
Quarter: 2005Q4

REPORT INFORMATION
  Report Type: 
  Country: None (occurrence: None)
  Receive Date: 20051216
  Receipt Date: 20051129
  Transmission Date: 20060501
  Serious: Yes (Life-Threatening, Hospitalization, Other)
  Sender: FDA-Public Use
  Company Number: USA0508106854

PATIENT
  Age: 17 Year
  Sex: Female

DRUGS (8)
  1. HUMATROPE [Suspect]
     Indication: GROWTH HORMONE DEFICIENCY
     Dosage: 3.2 MG, 6/W,
     Dates: start: 20010401, end: 20030627
  2. WELLBUTRIN [Concomitant]
  3. GLUCOPHAGE [Concomitant]
  4. CONCERTA [Concomitant]
  5. RITALIN [Concomitant]
  6. LORATADINE [Concomitant]
  7. PREVACID [Concomitant]
  8. ZOLOFT [Concomitant]

REACTIONS (4)
  - ACUTE LYMPHOCYTIC LEUKAEMIA [None]
  - DIABETES MELLITUS NON-INSULIN-DEPENDENT [None]
  - LEUKAEMIA [None]
  - LIVER ABSCESS [None]
